FAERS Safety Report 9163892 (Version 1)
Quarter: 2013Q1

REPORT INFORMATION
  Report Type: Spontaneous
  Country: US (occurrence: US)
  Receive Date: 20130314
  Receipt Date: 20130314
  Transmission Date: 20140127
  Serious: Yes (Hospitalization, Disabling, Other)
  Sender: FDA-Public Use
  Company Number: US-009507513-1110USA01310

PATIENT
  Sex: Female
  Weight: 64.86 kg

DRUGS (7)
  1. FOSAMAX [Suspect]
     Indication: OSTEOPOROSIS
     Dosage: 10 MG, UNK
     Route: 048
     Dates: start: 199606, end: 200106
  2. FOSAMAX [Suspect]
     Dosage: 70 MG, UNK
     Route: 048
     Dates: start: 200107, end: 200804
  3. CALCIUM (UNSPECIFIED) [Concomitant]
     Indication: OSTEOPOROSIS
     Dosage: 500 MG, QD
     Dates: start: 1996
  4. VITAMIN D (UNSPECIFIED) [Concomitant]
     Indication: OSTEOPOROSIS
     Dosage: 800 IU, QD
     Dates: start: 1996
  5. MK-9278 [Concomitant]
     Indication: OSTEOPOROSIS
     Dosage: UNK UNK, QD
     Dates: start: 1996
  6. HORMONES (UNSPECIFIED) [Concomitant]
     Dates: start: 1990, end: 2000
  7. NORVASC [Concomitant]
     Indication: HYPERTENSION
     Dosage: 10 MG, QD

REACTIONS (27)
  - Swelling [Not Recovered/Not Resolved]
  - Venous lake [Unknown]
  - Viral upper respiratory tract infection [Recovering/Resolving]
  - Oedema peripheral [Unknown]
  - Femur fracture [Recovered/Resolved]
  - Low turnover osteopathy [Not Recovered/Not Resolved]
  - Femur fracture [Not Recovered/Not Resolved]
  - Femur fracture [Unknown]
  - Osteoporosis [Not Recovered/Not Resolved]
  - Stress fracture [Not Recovered/Not Resolved]
  - Hypoacusis [Unknown]
  - Basal cell carcinoma [Unknown]
  - Hyperlipidaemia [Unknown]
  - Vitamin D deficiency [Unknown]
  - Syncope [Recovering/Resolving]
  - Onychomycosis [Not Recovered/Not Resolved]
  - Intervertebral disc protrusion [Recovered/Resolved]
  - Endometrial disorder [Unknown]
  - Neutropenia [Unknown]
  - Haematuria [Not Recovered/Not Resolved]
  - Osteoarthritis [Unknown]
  - Carotid artery disease [Unknown]
  - Large intestine polyp [Unknown]
  - Intervertebral disc degeneration [Unknown]
  - Spondylitis [Unknown]
  - Osteopenia [Unknown]
  - Nerve compression [Recovering/Resolving]
